FAERS Safety Report 15300686 (Version 1)
Quarter: 2018Q3

REPORT INFORMATION
  Report Type: Spontaneous
  Country: US (occurrence: US)
  Receive Date: 20180809
  Receipt Date: 20180809
  Transmission Date: 20181010
  Serious: Yes (Hospitalization, Other)
  Sender: FDA-Public Use
  Company Number: None

PATIENT
  Age: 63 Year
  Sex: Female
  Weight: 103.5 kg

DRUGS (9)
  1. PROZAC [Concomitant]
     Active Substance: FLUOXETINE HYDROCHLORIDE
  2. XANAX [Concomitant]
     Active Substance: ALPRAZOLAM
  3. NAPROXEN. [Concomitant]
     Active Substance: NAPROXEN
  4. METFORMIN [Concomitant]
     Active Substance: METFORMIN HYDROCHLORIDE
  5. METHIMAZOLE. [Concomitant]
     Active Substance: METHIMAZOLE
  6. GABAPENTIN. [Concomitant]
     Active Substance: GABAPENTIN
  7. VANCOMYCIN [Suspect]
     Active Substance: VANCOMYCIN
     Indication: CLOSTRIDIUM DIFFICILE INFECTION
     Dosage: ?          OTHER ROUTE:INJECTED BY NURSE THROUGH IV?
     Dates: start: 20180628, end: 20180629
  8. BUPROPION. [Concomitant]
     Active Substance: BUPROPION
  9. LISONOPRIL [Concomitant]

REACTIONS (6)
  - Skin exfoliation [None]
  - Erythema [None]
  - Dysuria [None]
  - Pruritus [None]
  - Vomiting [None]
  - Peripheral swelling [None]

NARRATIVE: CASE EVENT DATE: 20180628
